FAERS Safety Report 9686310 (Version 2)
Quarter: 2013Q4

REPORT INFORMATION
  Report Type: Spontaneous
  Country: BR (occurrence: BR)
  Receive Date: 20131113
  Receipt Date: 20131122
  Transmission Date: 20140711
  Serious: Yes (Hospitalization)
  Sender: FDA-Public Use
  Company Number: BR-ASTRAZENECA-2013SE81874

PATIENT
  Age: 61 Year
  Sex: Male
  Weight: 95 kg

DRUGS (6)
  1. CRESTOR [Suspect]
     Indication: BLOOD CHOLESTEROL ABNORMAL
     Route: 048
     Dates: start: 2005
  2. BRILINTA [Suspect]
     Indication: MYOCARDIAL INFARCTION
     Route: 048
     Dates: start: 20131105
  3. DIVELOL [Concomitant]
     Indication: MYOCARDIAL INFARCTION
     Dosage: TWO TIMES A DAY
     Dates: start: 20131105
  4. RENITEC [Concomitant]
     Indication: MYOCARDIAL INFARCTION
     Dosage: TWO TIMES A DAY
     Dates: start: 20131105
  5. SUSTRATE [Concomitant]
     Indication: MYOCARDIAL INFARCTION
     Dosage: TWO TIMES A DAY
     Dates: start: 20131105
  6. ASA [Concomitant]
     Indication: MYOCARDIAL INFARCTION
     Dosage: AFTER MEALS
     Dates: start: 20131105

REACTIONS (5)
  - Myocardial infarction [Recovered/Resolved]
  - Device occlusion [Recovered/Resolved]
  - Dyspnoea [Not Recovered/Not Resolved]
  - Headache [Not Recovered/Not Resolved]
  - Dizziness [Not Recovered/Not Resolved]
